FAERS Safety Report 11864164 (Version 1)
Quarter: 2015Q4

REPORT INFORMATION
  Report Type: Spontaneous
  Country: CN (occurrence: CN)
  Receive Date: 20151223
  Receipt Date: 20151223
  Transmission Date: 20160305
  Serious: Yes (Other)
  Sender: FDA-Public Use
  Company Number: CN-CONCORDIA PHARMACEUTICALS INC.-CO-UX-CN-2015-058

PATIENT
  Age: 30 Year
  Sex: Male

DRUGS (2)
  1. XATRAL [Suspect]
     Active Substance: ALFUZOSIN
     Indication: NEPHROLITHIASIS
     Route: 048
     Dates: start: 20151208
  2. DROTAVERINE HYDROCHLORIDE [Concomitant]
     Active Substance: DROTAVERINE HYDROCHLORIDE
     Dates: start: 20151203

REACTIONS (6)
  - Hyperhidrosis [Recovering/Resolving]
  - Deafness [Recovering/Resolving]
  - Cyanosis [Recovering/Resolving]
  - Nausea [Recovering/Resolving]
  - Medication error [Recovering/Resolving]
  - Feeling cold [Recovering/Resolving]

NARRATIVE: CASE EVENT DATE: 20151208
